FAERS Safety Report 4848436-9 (Version None)
Quarter: 2005Q4

REPORT INFORMATION
  Report Type: 
  Country: None (occurrence: None)
  Receive Date: 20051208
  Receipt Date: 20051128
  Transmission Date: 20060501
  Serious: Yes (Death)
  Sender: FDA-Public Use
  Company Number: DE-GLAXOSMITHKLINE-B0402265A

PATIENT
  Age: 61 Year
  Sex: Male

DRUGS (6)
  1. ACYCLOVIR [Suspect]
     Indication: PROPHYLAXIS
     Dosage: 10MGK THREE TIMES PER DAY
     Route: 042
  2. COTRIM [Concomitant]
     Route: 065
  3. TRIMETHOPRIME [Concomitant]
     Route: 065
  4. CYCLOSPORINE [Concomitant]
     Route: 065
  5. AZATHIOPRINE [Concomitant]
     Dosage: 125MG PER DAY
     Route: 065
  6. METHYLPREDNISOLONE [Concomitant]
     Dosage: 40MG PER DAY
     Route: 065

REACTIONS (11)
  - ANURIA [None]
  - CARDIAC FAILURE [None]
  - CONDITION AGGRAVATED [None]
  - HEPATIC FAILURE [None]
  - HEPATITIS CHOLESTATIC [None]
  - HERPES SIMPLEX [None]
  - MULTI-ORGAN FAILURE [None]
  - PNEUMONIA BACTERIAL [None]
  - RESPIRATORY FAILURE [None]
  - SKIN ULCER [None]
  - TRACHEOBRONCHITIS [None]
